FAERS Safety Report 23281173 (Version 1)
Quarter: 2023Q4

REPORT INFORMATION
  Report Type: Spontaneous
  Country: AR (occurrence: AR)
  Receive Date: 20231211
  Receipt Date: 20231211
  Transmission Date: 20240109
  Serious: Yes (Other)
  Sender: FDA-Public Use
  Company Number: AR-002147023-NVSC2023AR216599

PATIENT
  Age: 44 Year
  Sex: Female

DRUGS (8)
  1. KESIMPTA [Suspect]
     Active Substance: OFATUMUMAB
     Indication: Relapsing multiple sclerosis
     Dosage: UNK (FIRST APPLICATION ON 01 AUG, TUESDAY; LOADING DOSE)
     Route: 065
  2. KESIMPTA [Suspect]
     Active Substance: OFATUMUMAB
     Dosage: UNK (SECOND APPLICATION ON 08 AUG, TUESDAY; LOADING DOSE)
     Route: 065
  3. KESIMPTA [Suspect]
     Active Substance: OFATUMUMAB
     Dosage: UNK (THIRD APPLICATION ON 15 AUG, TUESDAY; LOADING DOSE)
     Route: 065
  4. KESIMPTA [Suspect]
     Active Substance: OFATUMUMAB
     Dosage: UNK (FOURTH APPLICATION ON 23 AUG, WEDNESDAY; MAINTENANCE DOSE)
     Route: 065
  5. KESIMPTA [Suspect]
     Active Substance: OFATUMUMAB
     Dosage: UNK (FIFTH APPLICATION ON 07 SEP; MAINTENANCE DOSE)
     Route: 065
  6. KESIMPTA [Suspect]
     Active Substance: OFATUMUMAB
     Dosage: UNK (SIXTH APPLICATION ON 14 SEP; MAINTENANCE DOSE)
     Route: 065
  7. KESIMPTA [Suspect]
     Active Substance: OFATUMUMAB
     Dosage: 20 MG (EVERY 28 DAYS)
     Route: 065
  8. KESIMPTA [Suspect]
     Active Substance: OFATUMUMAB
     Dosage: 20 MG (EVERY 28 DAYS)
     Route: 065
     Dates: start: 20231117

REACTIONS (5)
  - Lymphocyte count decreased [Unknown]
  - Confusional state [Unknown]
  - Cognitive disorder [Unknown]
  - Inappropriate schedule of product administration [Unknown]
  - Overdose [Unknown]

NARRATIVE: CASE EVENT DATE: 20231103
